FAERS Safety Report 17250582 (Version 1)
Quarter: 2020Q1

REPORT INFORMATION
  Report Type: Spontaneous
  Country: US (occurrence: US)
  Receive Date: 20200109
  Receipt Date: 20200109
  Transmission Date: 20200409
  Serious: Yes (Other)
  Sender: FDA-Public Use
  Company Number: US-HORIZON-ACT-0001-2020

PATIENT
  Age: 15 Year
  Sex: Female

DRUGS (1)
  1. ACTIMMUNE [Suspect]
     Active Substance: INTERFERON GAMMA-1B
     Indication: NEUTROPHIL FUNCTION DISORDER
     Dosage: 0.4ML FROM 1 VIAL FOR A TOTAL DOSE OF 0.4ML (80 MCG)
     Route: 058

REACTIONS (1)
  - Intentional self-injury [Recovering/Resolving]

NARRATIVE: CASE EVENT DATE: 2019
